FAERS Safety Report 5705473-X (Version None)
Quarter: 2008Q2

REPORT INFORMATION
  Report Type: 
  Country: None (occurrence: None)
  Receive Date: 20080411
  Receipt Date: 20080331
  Transmission Date: 20081010
  Serious: Yes (Other)
  Sender: FDA-Public Use
  Company Number: 2008008408

PATIENT
  Age: 32 Year
  Sex: Female
  Weight: 58.9676 kg

DRUGS (1)
  1. LISTERINE WHITENING PRE-BRUSH RINSE (NO ACTIVE INGREDIENT) [Suspect]
     Indication: DENTAL CARE
     Dosage: 1/2 CAPFUL TWICE DAILY (2 IN 1 D), ORAL
     Route: 048
     Dates: start: 20080318

REACTIONS (4)
  - FACIAL PAIN [None]
  - ORAL INTAKE REDUCED [None]
  - PAIN IN JAW [None]
  - SWELLING [None]
